FAERS Safety Report 5787210-6 (Version None)
Quarter: 2008Q2

REPORT INFORMATION
  Report Type: 
  Country: None (occurrence: None)
  Receive Date: 20080625
  Receipt Date: 20071023
  Transmission Date: 20081010
  Serious: No
  Sender: FDA-Public Use
  Company Number: US-ASTRAZENECA-2007UW21376

PATIENT
  Age: 33 Year
  Sex: Female
  Weight: 115 kg

DRUGS (11)
  1. PULMICORT RESPULES [Suspect]
     Indication: ASTHMA
     Route: 055
     Dates: start: 20070907
  2. XOPENEX [Suspect]
  3. ZYRTEC [Suspect]
  4. SINGULAIR [Concomitant]
  5. FOLIC ACID [Concomitant]
  6. LEXAPRO [Concomitant]
  7. VITAMIN CAP [Concomitant]
  8. CALCIUM [Concomitant]
  9. L-GLUTAMINE [Concomitant]
  10. ASCORBIC ACID [Concomitant]
  11. ALBUTEROL [Concomitant]

REACTIONS (4)
  - ABDOMINAL DISTENSION [None]
  - DECREASED APPETITE [None]
  - DRUG EXPOSURE DURING PREGNANCY [None]
  - WEIGHT DECREASED [None]
